FAERS Safety Report 18825746 (Version 1)
Quarter: 2021Q1

REPORT INFORMATION
  Report Type: Spontaneous
  Country: US (occurrence: US)
  Receive Date: 20210201
  Receipt Date: 20210201
  Transmission Date: 20210419
  Serious: No
  Sender: FDA-Public Use
  Company Number: US-ABBVIE-20K-163-3372735-00

PATIENT
  Age: 17 Year
  Sex: Female
  Weight: 46.31 kg

DRUGS (3)
  1. METHOTREXATE. [Concomitant]
     Active Substance: METHOTREXATE
     Indication: EYE OEDEMA
  2. HUMIRA [Suspect]
     Active Substance: ADALIMUMAB
     Indication: EYE OEDEMA
     Route: 058
     Dates: start: 20200327
  3. PREDNISONE. [Concomitant]
     Active Substance: PREDNISONE
     Indication: EYE OEDEMA

REACTIONS (6)
  - Wrong technique in product usage process [Recovered/Resolved]
  - Discomfort [Recovered/Resolved]
  - Off label use [Not Recovered/Not Resolved]
  - Device issue [Recovered/Resolved]
  - Injection site pruritus [Recovered/Resolved]
  - Injection site haemorrhage [Recovered/Resolved]

NARRATIVE: CASE EVENT DATE: 20200417
